FAERS Safety Report 17809209 (Version 1)
Quarter: 2020Q2

REPORT INFORMATION
  Report Type: Spontaneous
  Country: US (occurrence: US)
  Receive Date: 20200520
  Receipt Date: 20200520
  Transmission Date: 20200714
  Serious: No
  Sender: FDA-Public Use
  Company Number: US-BRISTOL-MYERS SQUIBB COMPANY-BMS-2020-039021

PATIENT
  Age: 62 Year
  Sex: Male

DRUGS (3)
  1. OMEPRAZOLE. [Concomitant]
     Active Substance: OMEPRAZOLE
     Indication: REFLUX LARYNGITIS
     Dosage: 40 MG, 30 MINUTES PRIOR TO BREAKFAST
     Route: 048
  2. TRIAMCINOLONE ACETONIDE. [Suspect]
     Active Substance: TRIAMCINOLONE ACETONIDE
     Indication: LARYNGEAL GRANULOMA
     Dosage: 1 MILLILITER
  3. ZANTAC [Concomitant]
     Active Substance: RANITIDINE HYDROCHLORIDE
     Indication: REFLUX LARYNGITIS
     Dosage: 300 MG, BEFORE BED TIME
     Route: 048

REACTIONS (2)
  - Intentional product use issue [Unknown]
  - Leukoplakia [Unknown]
